FAERS Safety Report 19865524 (Version 1)
Quarter: 2021Q3

REPORT INFORMATION
  Report Type: Spontaneous
  Country: FR (occurrence: FR)
  Receive Date: 20210922
  Receipt Date: 20210922
  Transmission Date: 20211014
  Serious: Yes (Hospitalization)
  Sender: FDA-Public Use
  Company Number: FR-BAUSCH-BL-2021-032271

PATIENT
  Age: 11 Month
  Sex: Male

DRUGS (10)
  1. DESONIDE. [Suspect]
     Active Substance: DESONIDE
     Indication: SKIN DISORDER
  2. BETAMETHASONE DIPROPIONATE. [Suspect]
     Active Substance: BETAMETHASONE DIPROPIONATE
     Indication: ECZEMA
  3. HYDROCORTISONE 1% [Suspect]
     Active Substance: HYDROCORTISONE
     Indication: ECZEMA
     Route: 065
  4. DESONIDE. [Suspect]
     Active Substance: DESONIDE
     Indication: ECZEMA
     Route: 065
  5. MOMETASONE FUROATE. [Suspect]
     Active Substance: MOMETASONE FUROATE
     Indication: SKIN DISORDER
     Route: 065
  6. BETAMETHASONE DIPROPIONATE. [Suspect]
     Active Substance: BETAMETHASONE DIPROPIONATE
     Indication: SKIN DISORDER
     Route: 065
  7. CLOBETASOL [Suspect]
     Active Substance: CLOBETASOL
     Indication: ECZEMA
     Route: 065
  8. MOMETASONE FUROATE. [Suspect]
     Active Substance: MOMETASONE FUROATE
     Indication: ECZEMA
  9. HYDROCORTISONE. [Suspect]
     Active Substance: HYDROCORTISONE
     Indication: ECZEMA
     Route: 065
  10. BETAMETHASONE. [Suspect]
     Active Substance: BETAMETHASONE
     Indication: ECZEMA
     Route: 065

REACTIONS (3)
  - Condition aggravated [Recovered/Resolved]
  - Cushing^s syndrome [Recovered/Resolved]
  - Hypertension [Recovered/Resolved]
